FAERS Safety Report 9041275 (Version 1)
Quarter: 2013Q1

REPORT INFORMATION
  Report Type: Spontaneous
  Country: US (occurrence: None)
  Receive Date: 20130123
  Receipt Date: 20130123
  Transmission Date: 20140127
  Serious: Yes (Disabling)
  Sender: FDA-Public Use
  Company Number: None

PATIENT
  Sex: 0

DRUGS (1)
  1. LARIAM [Suspect]
     Dates: start: 2006

REACTIONS (5)
  - Malaise [None]
  - Insomnia [None]
  - Decreased appetite [None]
  - Depressed mood [None]
  - Psychotic disorder [None]
